FAERS Safety Report 15322743 (Version 1)
Quarter: 2018Q4

REPORT INFORMATION
  Report Type: Spontaneous
  Country: CA (occurrence: CA)
  Receive Date: 20180827
  Receipt Date: 20180827
  Transmission Date: 20190204
  Serious: Yes (Hospitalization, Other)
  Sender: FDA-Public Use
  Company Number: CA-AYTU BIOSCIENCES, INC.-2018AYT000142

PATIENT

DRUGS (2)
  1. NATESTO [Suspect]
     Active Substance: TESTOSTERONE
     Indication: PRODUCT USED FOR UNKNOWN INDICATION
  2. LIOTHYRONINE [Suspect]
     Active Substance: LIOTHYRONINE
     Route: 048

REACTIONS (6)
  - Congestive cardiomyopathy [None]
  - Hepatic neoplasm [None]
  - Sinus tachycardia [None]
  - Drug abuse [None]
  - Ventricular hypertrophy [None]
  - Ventricular dysfunction [None]
